FAERS Safety Report 9383727 (Version 1)
Quarter: 2013Q3

REPORT INFORMATION
  Report Type: Spontaneous
  Country: US (occurrence: US)
  Receive Date: 20130704
  Receipt Date: 20130704
  Transmission Date: 20140515
  Serious: Yes (Other)
  Sender: FDA-Public Use
  Company Number: US-PFIZER INC-2013195998

PATIENT
  Age: 61 Year
  Sex: Female

DRUGS (9)
  1. AROMASIN [Suspect]
     Indication: BREAST CANCER FEMALE
     Dosage: 25 MG, 1X/DAY
     Route: 048
  2. TYLENOL PM [Concomitant]
     Dosage: UNK, AS NEEDED
  3. ASPIRIN [Concomitant]
     Dosage: 81 MG, AS NEEDED
     Route: 048
  4. INSULIN GLARGINE [Concomitant]
     Dosage: 40 UNITS IN MORNING+30 UNITS IN NIGHT
     Route: 058
  5. INSULIN ASPART [Concomitant]
     Dosage: 10 IU, AS NEEDED
     Route: 058
  6. BYSTOLIC [Concomitant]
     Dosage: 20 MG, 1X/DAY
     Route: 048
  7. ROSUVASTATIN [Concomitant]
     Dosage: 20 MG, 1X/DAY
     Route: 048
  8. VENLAFAXINE [Concomitant]
     Dosage: 37.5 MG, 1X/DAY
     Route: 048
  9. CALCIUM WITH VITAMIN D [Concomitant]
     Dosage: UNK

REACTIONS (5)
  - Obesity [Unknown]
  - Blood glucose increased [Unknown]
  - Blood cholesterol increased [Unknown]
  - Blood triglycerides increased [Unknown]
  - Haemoglobin abnormal [Unknown]
